FAERS Safety Report 5162463-6 (Version None)
Quarter: 2006Q4

REPORT INFORMATION
  Report Type: 
  Country: None (occurrence: None)
  Receive Date: 20061129
  Receipt Date: 20061129
  Transmission Date: 20070319
  Serious: Yes (Hospitalization)
  Sender: FDA-Public Use
  Company Number: None

PATIENT
  Sex: Male
  Weight: 74 kg

DRUGS (3)
  1. FLUDARABINE [Suspect]
     Indication: NON-HODGKIN'S LYMPHOMA
     Dosage: 57MG DAILY IV
     Route: 042
     Dates: start: 20060818, end: 20060823
  2. MELPHALAN [Suspect]
     Dosage: 266 TIMES ONE IV
     Route: 042
     Dates: start: 20060822, end: 20060823
  3. CAMPATH [Concomitant]

REACTIONS (3)
  - ABDOMINAL PAIN [None]
  - CHOLELITHIASIS [None]
  - CONSTIPATION [None]
